FAERS Safety Report 5201484-1 (Version None)
Quarter: 2006Q4

REPORT INFORMATION
  Report Type: 
  Country: None (occurrence: None)
  Receive Date: 20061004
  Receipt Date: 20060706
  Transmission Date: 20070319
  Serious: No
  Sender: FDA-Public Use
  Company Number: US200607000777

PATIENT
  Age: 58 Year
  Sex: Male

DRUGS (4)
  1. ALIMTA [Suspect]
  2. ALIMTA [Suspect]
  3. VITAMIN B12 (CYCANOCONALAMIN) [Concomitant]
  4. FOLIC ACID [Concomitant]

REACTIONS (1)
  - MUSCLE SPASMS [None]
